FAERS Safety Report 12226787 (Version 1)
Quarter: 2016Q1

REPORT INFORMATION
  Report Type: Spontaneous
  Country: FR (occurrence: FR)
  Receive Date: 20160331
  Receipt Date: 20160331
  Transmission Date: 20160526
  Serious: Yes (Other)
  Sender: FDA-Public Use
  Company Number: FR-TAKEDA-2016MPI002178

PATIENT
  Age: 66 Year
  Sex: Female

DRUGS (2)
  1. DEXAMETHASONE. [Suspect]
     Active Substance: DEXAMETHASONE
     Indication: LIGHT CHAIN DISEASE
     Dosage: 20 MG, UNK
     Route: 048
  2. VELCADE [Suspect]
     Active Substance: BORTEZOMIB
     Indication: LIGHT CHAIN DISEASE
     Dosage: 1.3 MG/M2, 2/WEEK
     Route: 058

REACTIONS (4)
  - Hepatitis cholestatic [Recovered/Resolved]
  - Hepatitis [Recovered/Resolved]
  - Atrial fibrillation [Unknown]
  - Hypertrophic cardiomyopathy [Unknown]
